FAERS Safety Report 16290989 (Version 1)
Quarter: 2019Q2

REPORT INFORMATION
  Report Type: Spontaneous
  Country: FR (occurrence: FR)
  Receive Date: 20190509
  Receipt Date: 20190509
  Transmission Date: 20190711
  Serious: Yes (Other)
  Sender: FDA-Public Use
  Company Number: FR-MYLANLABS-2019M1043696

PATIENT
  Age: 76 Year
  Sex: Female
  Weight: 47 kg

DRUGS (5)
  1. ZOPHREN                            /00955302/ [Suspect]
     Active Substance: ONDANSETRON
     Indication: PROPHYLAXIS
     Dosage: 8 MILLIGRAM, CYCLE
     Route: 042
     Dates: start: 20181213, end: 20181227
  2. GUTRON [Concomitant]
     Active Substance: MIDODRINE
     Indication: PRODUCT USED FOR UNKNOWN INDICATION
     Dosage: UNK
     Route: 048
  3. CARBOPLATIN. [Suspect]
     Active Substance: CARBOPLATIN
     Indication: OVARIAN EPITHELIAL CANCER
     Dosage: 140 MILLIGRAM, CYCLE
     Route: 041
     Dates: start: 20181213
  4. LOVENOX [Concomitant]
     Active Substance: ENOXAPARIN SODIUM
     Indication: PRODUCT USED FOR UNKNOWN INDICATION
     Dosage: UNK
     Route: 058
  5. MIRTAZAPINE BLUEFISH [Concomitant]
     Active Substance: MIRTAZAPINE
     Indication: PRODUCT USED FOR UNKNOWN INDICATION
     Dosage: 15 MILLIGRAM, QD
     Route: 048

REACTIONS (2)
  - Pruritus [Recovered/Resolved]
  - Dermatitis exfoliative generalised [Recovered/Resolved]

NARRATIVE: CASE EVENT DATE: 20181214
